FAERS Safety Report 17266167 (Version 1)
Quarter: 2020Q1

REPORT INFORMATION
  Report Type: Spontaneous
  Country: US (occurrence: US)
  Receive Date: 20200114
  Receipt Date: 20200114
  Transmission Date: 20200409
  Serious: No
  Sender: FDA-Public Use
  Company Number: US-CELGENEUS-USA-20200103523

PATIENT
  Age: 64 Year
  Sex: Male

DRUGS (3)
  1. OTEZLA [Suspect]
     Active Substance: APREMILAST
     Dosage: 60 MILLIGRAM
     Route: 048
     Dates: start: 20181215
  2. OTEZLA [Suspect]
     Active Substance: APREMILAST
     Indication: PSORIATIC ARTHROPATHY
     Dosage: 60 MILLIGRAM
     Route: 048
     Dates: start: 2018
  3. PLAQUENIL [Suspect]
     Active Substance: HYDROXYCHLOROQUINE SULFATE
     Indication: PSORIATIC ARTHROPATHY
     Route: 065

REACTIONS (6)
  - Eczema [Unknown]
  - Dyspepsia [Not Recovered/Not Resolved]
  - Nodule [Unknown]
  - Decreased appetite [Unknown]
  - Psoriatic arthropathy [Unknown]
  - Weight decreased [Unknown]

NARRATIVE: CASE EVENT DATE: 201911
